FAERS Safety Report 24258406 (Version 2)
Quarter: 2024Q3

REPORT INFORMATION
  Report Type: Spontaneous
  Country: US (occurrence: None)
  Receive Date: 20240828
  Receipt Date: 20240918
  Transmission Date: 20241016
  Serious: No
  Sender: ASTRAZENECA
  Company Number: 2024A193133

PATIENT
  Sex: Female

DRUGS (1)
  1. BREZTRI [Suspect]
     Active Substance: BUDESONIDE\FORMOTEROL\GLYCOPYRROLATE
     Dosage: 160.0UG UNKNOWN
     Route: 055
     Dates: start: 202406

REACTIONS (5)
  - Hiatus hernia [Unknown]
  - Off label use [Unknown]
  - Drug ineffective [Unknown]
  - Intentional product misuse [Unknown]
  - Wrong technique in device usage process [Unknown]
